FAERS Safety Report 6743808-X (Version None)
Quarter: 2010Q2

REPORT INFORMATION
  Report Type: 
  Country: None (occurrence: None)
  Receive Date: 20100527
  Receipt Date: 20100223
  Transmission Date: 20101027
  Serious: No
  Sender: FDA-Public Use
  Company Number: US-KINGPHARMUSA00001-K201000262

PATIENT
  Sex: Male

DRUGS (1)
  1. FLECTOR [Suspect]
     Dosage: UNK
     Route: 061
     Dates: start: 20100201, end: 20100201

REACTIONS (1)
  - APPLICATION SITE RASH [None]
